FAERS Safety Report 4541367-3 (Version None)
Quarter: 2004Q4

REPORT INFORMATION
  Report Type: 
  Country: None (occurrence: None)
  Receive Date: 20041227
  Receipt Date: 20041206
  Transmission Date: 20050328
  Serious: Yes (Hospitalization, Disabling, Other)
  Sender: FDA-Public Use
  Company Number: 210955

PATIENT
  Age: 28 Year
  Sex: Female

DRUGS (10)
  1. MABTHERA(RITUXIMAB) CONC FOR SOLUTION FOR INFUSION [Suspect]
     Indication: NON-HODGKIN'S LYMPHOMA
     Dosage: 630 MG, IV DRIP
     Route: 041
     Dates: start: 20040420, end: 20040812
  2. FLUCONAZOLE [Concomitant]
  3. LEVOFLOXACIN [Concomitant]
  4. SEPTRA [Concomitant]
  5. LANSOPRAZOLE [Concomitant]
  6. CYCLIZINE (CYCLIZINE) [Concomitant]
  7. LACTULOSE [Concomitant]
  8. CYCLOPHOSPHAMIDE [Concomitant]
  9. DOXORUBICIN (DOXORUBICIN HYDROCHLORIDE, DOXORUBICIN) [Concomitant]
  10. VINCRISTINE [Concomitant]

REACTIONS (3)
  - ASCITES [None]
  - GASTROINTESTINAL OEDEMA [None]
  - PLEURAL EFFUSION [None]
